FAERS Safety Report 10393592 (Version 1)
Quarter: 2014Q3

REPORT INFORMATION
  Report Type: Spontaneous
  Country: CA (occurrence: CA)
  Receive Date: 20140819
  Receipt Date: 20140819
  Transmission Date: 20150326
  Serious: Yes (Hospitalization)
  Sender: FDA-Public Use
  Company Number: CA-009507513-1408CAN009268

PATIENT
  Age: 24 Year
  Sex: Male

DRUGS (1)
  1. POSANOL [Suspect]
     Active Substance: POSACONAZOLE
     Indication: HODGKIN^S DISEASE
     Dosage: 200 MG, DAILY DOSE UNKNOWN
     Route: 048
     Dates: start: 20140717

REACTIONS (1)
  - Adverse event [Unknown]

NARRATIVE: CASE EVENT DATE: 20140813
